FAERS Safety Report 6088738-4 (Version None)
Quarter: 2009Q1

REPORT INFORMATION
  Report Type: 
  Country: None (occurrence: None)
  Receive Date: 20090224
  Receipt Date: 20090210
  Transmission Date: 20090719
  Serious: Yes (Hospitalization, Other)
  Sender: FDA-Public Use
  Company Number: DE-PFIZER INC-2008005690

PATIENT

DRUGS (2)
  1. GENOTROPIN [Suspect]
     Indication: FOETAL GROWTH RETARDATION
     Dosage: 0.4 MG, 1X/DAY
     Route: 058
     Dates: start: 20060131, end: 20060301
  2. GENOTROPIN [Suspect]
     Indication: BODY HEIGHT BELOW NORMAL
     Dosage: 0.4 MG, 1X/DAY
     Route: 058
     Dates: start: 20060601, end: 20061107

REACTIONS (3)
  - GLUCOSE TOLERANCE IMPAIRED [None]
  - NEOPLASM RECURRENCE [None]
  - NEUROFIBROMA [None]
